FAERS Safety Report 13590165 (Version 1)
Quarter: 2017Q2

REPORT INFORMATION
  Report Type: Spontaneous
  Country: US (occurrence: US)
  Receive Date: 20170529
  Receipt Date: 20170529
  Transmission Date: 20170830
  Serious: Yes (Other)
  Sender: FDA-Public Use
  Company Number: None

PATIENT
  Age: 50 Year
  Sex: Female
  Weight: 90 kg

DRUGS (4)
  1. KIDS MEDICATIONS [Concomitant]
  2. NSAIDS [Concomitant]
     Active Substance: UNSPECIFIED INGREDIENT
  3. POLYSORBATE [Suspect]
     Active Substance: POLYSORBATE
     Indication: DIABETES MELLITUS
     Dosage: QUANTITY:1 ANY;OTHER ROUTE:IN FOODS, NOUTHWASHES, SOAPS, MEDICATION?
  4. APRINS [Concomitant]

REACTIONS (1)
  - Hypoaesthesia [None]

NARRATIVE: CASE EVENT DATE: 20170301
